FAERS Safety Report 8357668-7 (Version None)
Quarter: 2012Q2

REPORT INFORMATION
  Report Type: 
  Country: None (occurrence: None)
  Receive Date: 20120511
  Receipt Date: 20120427
  Transmission Date: 20120825
  Serious: Yes (Other)
  Sender: FDA-Public Use
  Company Number: FR-1191904

PATIENT
  Age: 82 Year
  Sex: Male

DRUGS (7)
  1. OFLOXACIN [Suspect]
     Dosage: (BID)
     Dates: start: 20110201, end: 20110206
  2. LUCENTIS [Suspect]
     Indication: AGE-RELATED MACULAR DEGENERATION
     Dosage: )10 MG/ML 1 ADMINISTRATION PER MONTH)
     Dates: start: 20110202
  3. PENTOXIFYLLINE [Concomitant]
  4. IOPIDINE [Suspect]
     Dosage: (BID OPHTHALMIC)
     Route: 047
     Dates: start: 20110202, end: 20110220
  5. ALFUZOSIN HCL [Concomitant]
  6. LACRIGEL (LACRIGEL) (FARMIGEA S.P.A.) [Suspect]
     Dosage: (TID)
     Dates: start: 20110202, end: 20110206
  7. PERMIXON [Concomitant]

REACTIONS (1)
  - RETINAL PIGMENT EPITHELIAL TEAR [None]
